FAERS Safety Report 18011962 (Version 1)
Quarter: 2020Q3

REPORT INFORMATION
  Report Type: Spontaneous
  Country: PT (occurrence: PT)
  Receive Date: 20200713
  Receipt Date: 20200713
  Transmission Date: 20201103
  Serious: Yes (Hospitalization, Other)
  Sender: FDA-Public Use
  Company Number: PT-SA-2020SA176935

PATIENT

DRUGS (3)
  1. ENOXAPARIN SODIUM. [Suspect]
     Active Substance: ENOXAPARIN SODIUM
     Dosage: UNK
  2. RANITIDINE. [Suspect]
     Active Substance: RANITIDINE
     Dosage: UNK
  3. PREDNISOLONE. [Suspect]
     Active Substance: PREDNISOLONE
     Dosage: UNK

REACTIONS (6)
  - Gastrointestinal necrosis [Unknown]
  - Acute abdomen [Unknown]
  - Retroperitoneal haematoma [Recovered/Resolved]
  - Duodenal ulcer haemorrhage [Unknown]
  - Haemoglobin decreased [Unknown]
  - Intestinal haematoma [Recovered/Resolved]
